FAERS Safety Report 7991790-X (Version None)
Quarter: 2011Q4

REPORT INFORMATION
  Report Type: 
  Country: None (occurrence: None)
  Receive Date: 20111219
  Receipt Date: 20111214
  Transmission Date: 20120403
  Serious: Yes (Hospitalization)
  Sender: FDA-Public Use
  Company Number: US-BAYER-2011-112083

PATIENT
  Age: 55 Year
  Sex: Male

DRUGS (3)
  1. ANTIHYPERTENSIVES [Concomitant]
     Indication: HYPERTENSION
  2. SORAFENIB (RAF KINASE INHIBITOR) [Suspect]
     Indication: HEPATIC NEOPLASM MALIGNANT
     Dosage: 400 MG, QD
     Dates: start: 20111116, end: 20111211
  3. ANTI-DIABETICS [Concomitant]
     Indication: DIABETES MELLITUS

REACTIONS (7)
  - BLOOD PRESSURE INCREASED [None]
  - URINARY INCONTINENCE [None]
  - URINE FLOW DECREASED [None]
  - BODY TEMPERATURE INCREASED [None]
  - CHROMATURIA [None]
  - HEART RATE INCREASED [None]
  - ABDOMINAL PAIN UPPER [None]
